FAERS Safety Report 9609007 (Version 2)
Quarter: 2014Q1

REPORT INFORMATION
  Report Type: Spontaneous
  Country: PT (occurrence: PT)
  Receive Date: 20131009
  Receipt Date: 20140204
  Transmission Date: 20141002
  Serious: No
  Sender: FDA-Public Use
  Company Number: PT-ELI_LILLY_AND_COMPANY-PT201310000905

PATIENT
  Age: 46 Year
  Sex: Male

DRUGS (3)
  1. CIALIS [Suspect]
     Indication: PRODUCT USED FOR UNKNOWN INDICATION
     Dosage: 10 MG, UNKNOWN
     Route: 048
     Dates: start: 20130928, end: 20130928
  2. CIALIS [Suspect]
     Dosage: 20 MG, UNKNOWN
     Route: 048
     Dates: start: 2012
  3. BISOPROLOL [Concomitant]
     Indication: HYPERTENSION
     Route: 065

REACTIONS (2)
  - Urinary tract infection [Unknown]
  - Intentional drug misuse [Unknown]
